FAERS Safety Report 17300543 (Version 2)
Quarter: 2020Q1

REPORT INFORMATION
  Report Type: Spontaneous
  Country: US (occurrence: US)
  Receive Date: 20200122
  Receipt Date: 20200219
  Transmission Date: 20200409
  Serious: No
  Sender: FDA-Public Use
  Company Number: US-JNJFOC-20200128067

PATIENT
  Sex: Female

DRUGS (2)
  1. TREMFYA [Suspect]
     Active Substance: GUSELKUMAB
     Indication: PRODUCT USED FOR UNKNOWN INDICATION
     Route: 058
     Dates: start: 201904
  2. TREMFYA [Suspect]
     Active Substance: GUSELKUMAB
     Route: 042

REACTIONS (4)
  - Influenza [Recovered/Resolved]
  - Incorrect route of product administration [Unknown]
  - Off label use [Unknown]
  - Hypersensitivity [Unknown]
